FAERS Safety Report 15593654 (Version 1)
Quarter: 2018Q4

REPORT INFORMATION
  Report Type: Spontaneous
  Country: CN (occurrence: CN)
  Receive Date: 20181107
  Receipt Date: 20181107
  Transmission Date: 20190205
  Serious: Yes (Other)
  Sender: FDA-Public Use
  Company Number: CN-PFIZER INC-2018445286

PATIENT
  Age: 66 Year
  Sex: Male

DRUGS (2)
  1. BI CUN [Suspect]
     Active Substance: EDARAVONE
     Indication: THALAMUS HAEMORRHAGE
     Dosage: 30 MG, 2X/DAY
     Route: 041
     Dates: start: 20180203, end: 20180218
  2. CEFOPERAZONE SODIUM [Suspect]
     Active Substance: CEFOPERAZONE SODIUM
     Indication: THALAMUS HAEMORRHAGE
     Dosage: 2 G, 2X/DAY
     Route: 041
     Dates: start: 20180204, end: 20180218

REACTIONS (1)
  - Hepatocellular injury [Recovered/Resolved]

NARRATIVE: CASE EVENT DATE: 20180218
